FAERS Safety Report 6529206-2 (Version None)
Quarter: 2010Q1

REPORT INFORMATION
  Report Type: 
  Country: None (occurrence: None)
  Receive Date: 20100107
  Receipt Date: 20091231
  Transmission Date: 20100710
  Serious: Yes (Other)
  Sender: FDA-Public Use
  Company Number: DE-TYCO HEALTHCARE/MALLINCKRODT-T200902376

PATIENT
  Sex: Female

DRUGS (1)
  1. OPTIRAY 300 [Suspect]
     Indication: DIAGNOSTIC PROCEDURE
     Dosage: 50 ML, SINGLE
     Route: 042
     Dates: start: 20091218, end: 20091218

REACTIONS (4)
  - BRADYCARDIA [None]
  - BRONCHOSPASM [None]
  - NAUSEA [None]
  - VOMITING [None]
